FAERS Safety Report 6783097-3 (Version None)
Quarter: 2010Q2

REPORT INFORMATION
  Report Type: 
  Country: None (occurrence: None)
  Receive Date: 20100622
  Receipt Date: 20100609
  Transmission Date: 20101027
  Serious: Yes (Death)
  Sender: FDA-Public Use
  Company Number: JP-BAYER-201028395GPV

PATIENT

DRUGS (4)
  1. FLUDARABINE [Suspect]
     Indication: BONE MARROW CONDITIONING REGIMEN
     Dosage: TOTAL DAILY DOSE: 30 MG/M2
     Route: 042
  2. BUSULFEX [Suspect]
     Indication: BONE MARROW CONDITIONING REGIMEN
     Dosage: TOTAL DAILY DOSE: 3.2 MG/KG
     Route: 042
  3. ATG-FRESENIUS [Suspect]
     Indication: BONE MARROW CONDITIONING REGIMEN
     Dosage: TOTAL DAILY DOSE: 2.5 MG/KG
     Route: 042
  4. CYCLOSPORINE [Concomitant]
     Indication: PROPHYLAXIS AGAINST GRAFT VERSUS HOST DISEASE

REACTIONS (2)
  - OBLITERATIVE BRONCHIOLITIS [None]
  - RESPIRATORY FAILURE [None]
